FAERS Safety Report 10890822 (Version 1)
Quarter: 2015Q1

REPORT INFORMATION
  Report Type: Spontaneous
  Country: BR (occurrence: BR)
  Receive Date: 20150305
  Receipt Date: 20150305
  Transmission Date: 20150721
  Serious: Yes (Other)
  Sender: FDA-Public Use
  Company Number: BR-JNJFOC-20150302183

PATIENT
  Age: 55 Year
  Sex: Female
  Weight: 90 kg

DRUGS (2)
  1. TRAMAL [Suspect]
     Active Substance: TRAMADOL
     Indication: PAIN IN EXTREMITY
     Route: 065
  2. CELEBRA [Suspect]
     Active Substance: CELECOXIB
     Indication: GENERAL PHYSICAL HEALTH DETERIORATION
     Route: 048
     Dates: start: 2013

REACTIONS (1)
  - Meniscus operation [Unknown]

NARRATIVE: CASE EVENT DATE: 20150223
